FAERS Safety Report 6431125-7 (Version None)
Quarter: 2009Q4

REPORT INFORMATION
  Report Type: 
  Country: None (occurrence: None)
  Receive Date: 20091106
  Receipt Date: 20091028
  Transmission Date: 20100525
  Serious: Yes (Hospitalization, Other)
  Sender: FDA-Public Use
  Company Number: US-ABBOTT-09P-163-0588079-00

PATIENT
  Sex: Male
  Weight: 102.7 kg

DRUGS (17)
  1. HUMIRA [Suspect]
     Indication: RHEUMATOID ARTHRITIS
     Route: 058
     Dates: start: 20010202, end: 20090619
  2. CLARITIN [Concomitant]
     Indication: RHINITIS ALLERGIC
     Dates: start: 20020201
  3. FLOMAX [Concomitant]
     Indication: PROSTATITIS
     Dates: start: 20021011, end: 20080807
  4. FLOMAX [Concomitant]
     Dates: start: 20081002
  5. ZANTAC [Concomitant]
     Indication: DYSPEPSIA
     Dates: start: 19990101
  6. ZANTAC [Concomitant]
     Indication: GASTROOESOPHAGEAL REFLUX DISEASE
  7. TYLENOL [Concomitant]
     Indication: SINUS HEADACHE
  8. MULTI-VITAMIN [Concomitant]
     Indication: VITAMIN SUPPLEMENTATION
     Dates: start: 19980101
  9. LIDEX [Concomitant]
     Indication: ECZEMA
     Dosage: FORM: APPLICATION
     Dates: start: 20000927
  10. ASPIRIN [Concomitant]
     Indication: CARDIOVASCULAR EVENT PROPHYLAXIS
     Dates: start: 20031031
  11. ACEBUTOLOL [Concomitant]
     Indication: HYPERTENSION
     Dates: start: 20050122
  12. DOXAZOSIN [Concomitant]
     Indication: PROSTATITIS
     Dates: start: 20080807, end: 20081001
  13. BENAZEPRIL HYDROCHLORIDE [Concomitant]
     Indication: HYPERTENSION
     Dates: start: 20070102
  14. VERAPAMIL [Concomitant]
     Indication: HYPERTENSION
     Dates: start: 20070102
  15. DICLOFENAC [Concomitant]
     Indication: RHEUMATOID ARTHRITIS
     Dates: start: 20041001, end: 20070122
  16. DICLOFENAC [Concomitant]
     Dates: start: 20070123
  17. FINASTERIDE [Concomitant]
     Indication: PROSTATITIS
     Route: 048
     Dates: start: 20080807, end: 20081001

REACTIONS (1)
  - BENIGN BILIARY NEOPLASM [None]
